FAERS Safety Report 4745239-0 (Version None)
Quarter: 2005Q3

REPORT INFORMATION
  Report Type: 
  Country: None (occurrence: None)
  Receive Date: 20050812
  Receipt Date: 20050803
  Transmission Date: 20060218
  Serious: Yes (Hospitalization, Other)
  Sender: FDA-Public Use
  Company Number: 2005041034

PATIENT
  Age: 29 Year
  Sex: Female

DRUGS (2)
  1. ATARAX [Suspect]
     Indication: ANXIETY
     Dosage: 25 MG, (1 IN 1 D), ORAL
     Route: 048
     Dates: start: 20041014, end: 20041125
  2. FLUOXETINE [Suspect]
     Indication: DEPRESSION
     Dosage: (20 MG, ), ORAL
     Route: 048
     Dates: start: 20041014, end: 20041106

REACTIONS (3)
  - DRUG EXPOSURE DURING PREGNANCY [None]
  - PREMATURE LABOUR [None]
  - THREATENED LABOUR [None]
